FAERS Safety Report 14037015 (Version 5)
Quarter: 2018Q1

REPORT INFORMATION
  Report Type: Report from Study
  Country: KR (occurrence: KR)
  Receive Date: 20171004
  Receipt Date: 20180212
  Transmission Date: 20180508
  Serious: Yes (Hospitalization, Other)
  Sender: FDA-Public Use
  Company Number: KR-BRISTOL-MYERS SQUIBB COMPANY-BMS-2017-085818

PATIENT
  Age: 58 Year
  Sex: Female
  Weight: 56.6 kg

DRUGS (20)
  1. REMESTYP [Concomitant]
     Indication: HAEMATEMESIS
     Dosage: 4 ML, UNK
     Route: 042
     Dates: start: 20170126, end: 20170130
  2. ASUNAPREVIR [Suspect]
     Active Substance: ASUNAPREVIR
     Indication: HEPATITIS C
     Dosage: 200 MG, BID
     Route: 048
     Dates: start: 20170106, end: 20170623
  3. INDENOL [Concomitant]
     Active Substance: PROPRANOLOL HYDROCHLORIDE
     Indication: HEPATIC CIRRHOSIS
     Dosage: 20 MG, UNK
     Route: 048
     Dates: start: 20140327, end: 20170609
  4. HEPATAMINE                         /03652001/ [Concomitant]
     Indication: HAEMATEMESIS
     Dosage: 500 ML, UNK
     Route: 042
     Dates: start: 20170126, end: 20170205
  5. GANAKHAN [Concomitant]
     Indication: HAEMATEMESIS
     Dosage: 50 MG, UNK
     Route: 048
     Dates: start: 20170129, end: 20170206
  6. EPOCELIN [Concomitant]
     Active Substance: CEFTIZOXIME SODIUM
     Indication: HAEMATEMESIS
     Dosage: 6 G, UNK
     Route: 042
     Dates: start: 20170127, end: 20170128
  7. INDENOL [Concomitant]
     Active Substance: PROPRANOLOL HYDROCHLORIDE
     Indication: PRODUCT USED FOR UNKNOWN INDICATION
     Dosage: 10 MG, UNK
     Route: 048
     Dates: start: 20170707
  8. NORMIX [Concomitant]
     Active Substance: RIFAXIMIN
     Indication: PROPHYLAXIS
     Dosage: 600 MG, UNK
     Route: 048
     Dates: start: 20170707, end: 20170811
  9. PANTOLOC                           /01263201/ [Concomitant]
     Active Substance: PANTOPRAZOLE SODIUM
     Indication: HAEMATEMESIS
     Dosage: 40 MG, UNK
     Route: 042
     Dates: start: 20170126, end: 20170203
  10. LASIX [Concomitant]
     Active Substance: FUROSEMIDE
     Indication: PRODUCT USED FOR UNKNOWN INDICATION
     Dosage: 20 MG, UNK
     Route: 042
     Dates: start: 20170128, end: 20170128
  11. NEXIUM [Concomitant]
     Active Substance: ESOMEPRAZOLE MAGNESIUM
     Indication: PROPHYLAXIS AGAINST GASTROINTESTINAL ULCER
     Dosage: 20 MG, UNK
     Route: 048
     Dates: start: 20170512
  12. MECKOOL [Concomitant]
     Indication: HAEMATEMESIS
     Dosage: 10 MG, UNK
     Route: 042
     Dates: start: 20170129, end: 20170129
  13. CITOPCIN                           /00697202/ [Concomitant]
     Indication: HAEMATEMESIS
     Dosage: 400 ML, UNK
     Route: 042
     Dates: start: 20170127, end: 20170201
  14. CEFOTAXIME [Concomitant]
     Active Substance: CEFOTAXIME SODIUM
     Indication: HAEMATEMESIS
     Dosage: 6 G, UNK
     Route: 042
     Dates: start: 20170126, end: 20170129
  15. ULCERMIN                           /00434701/ [Concomitant]
     Indication: HAEMATEMESIS
     Dosage: 3 G, UNK
     Route: 048
     Dates: start: 20170201, end: 20170206
  16. GLAMIN                             /01909901/ [Concomitant]
     Indication: HAEMATEMESIS
     Dosage: 500 ML, UNK
     Route: 042
     Dates: start: 20170127, end: 20170131
  17. DACLATASVIR DIHYDROCHLORIDE [Suspect]
     Active Substance: DACLATASVIR DIHYDROCHLORIDE
     Indication: HEPATITIS C
     Dosage: 60 MG, QD
     Route: 048
     Dates: start: 20170106, end: 20170623
  18. ADIPAM                             /00058402/ [Concomitant]
     Indication: PROPHYLAXIS
     Dosage: 30 MG, UNK
     Route: 048
     Dates: start: 20170106, end: 20170113
  19. VITAMIN K1 [Concomitant]
     Active Substance: PHYTONADIONE
     Indication: HAEMATEMESIS
     Dosage: 10 MG, UNK
     Route: 042
     Dates: start: 20170126, end: 20170126
  20. DENOGAN [Concomitant]
     Active Substance: PROPACETAMOL HYDROCHLORIDE
     Indication: PYREXIA
     Dosage: 1 G, UNK
     Route: 042
     Dates: start: 20170128, end: 20170128

REACTIONS (2)
  - Pyrexia [Recovered/Resolved]
  - Haematemesis [Recovered/Resolved]

NARRATIVE: CASE EVENT DATE: 20170126
